FAERS Safety Report 8003600-5 (Version None)
Quarter: 2011Q4

REPORT INFORMATION
  Report Type: 
  Country: None (occurrence: None)
  Receive Date: 20111222
  Receipt Date: 20111221
  Transmission Date: 20120403
  Serious: Yes (Other)
  Sender: FDA-Public Use
  Company Number: IT-PFIZER INC-2011310923

PATIENT
  Age: 64 Year
  Sex: Female

DRUGS (2)
  1. TROXERUTIN [Suspect]
     Indication: VEIN DISORDER
     Dosage: 1 DF, DAILY
     Route: 048
     Dates: start: 20111203, end: 20111213
  2. ATORVASTATIN CALCIUM [Suspect]
     Indication: HYPERCHOLESTEROLAEMIA
     Dosage: 1 DF, DAILY
     Route: 048
     Dates: start: 20111203, end: 20111213

REACTIONS (2)
  - URTICARIA [None]
  - SKIN LESION [None]
